FAERS Safety Report 5778493-7 (Version None)
Quarter: 2008Q2

REPORT INFORMATION
  Report Type: 
  Country: None (occurrence: None)
  Receive Date: 20080617
  Receipt Date: 20080609
  Transmission Date: 20081010
  Serious: Yes (Other)
  Sender: FDA-Public Use
  Company Number: 2008SP011486

PATIENT
  Age: 35 Year
  Sex: Female

DRUGS (1)
  1. MIRALAX [Suspect]
     Indication: DRUG USE FOR UNKNOWN INDICATION
     Dosage: TID; PO
     Route: 048
     Dates: start: 20080101, end: 20080608

REACTIONS (5)
  - AGEUSIA [None]
  - DRUG ABUSE [None]
  - DYSGEUSIA [None]
  - FLUID RETENTION [None]
  - THIRST [None]
